FAERS Safety Report 4579068-8 (Version None)
Quarter: 2005Q1

REPORT INFORMATION
  Report Type: 
  Country: None (occurrence: None)
  Receive Date: 20050211
  Receipt Date: 20050103
  Transmission Date: 20050727
  Serious: Yes (Hospitalization)
  Sender: FDA-Public Use
  Company Number: FR-MERCK-0501FRA00009

PATIENT
  Age: 70 Year
  Sex: Female

DRUGS (6)
  1. PRIMAXIN [Suspect]
     Indication: LUNG DISORDER
     Route: 042
     Dates: start: 20041110, end: 20041120
  2. TEICOPLANIN [Suspect]
     Indication: LUNG DISORDER
     Route: 042
     Dates: start: 20041113, end: 20041119
  3. FUSIDATE SODIUM [Suspect]
     Indication: LUNG DISORDER
     Route: 042
     Dates: start: 20041110, end: 20041119
  4. CIPROFLOXACIN HYDROCHLORIDE [Concomitant]
     Indication: LUNG DISORDER
     Route: 065
     Dates: end: 20041112
  5. PRISTINAMYCIN [Suspect]
     Route: 048
     Dates: start: 20041119, end: 20041203
  6. CEFOTAXIME SODIUM [Suspect]
     Route: 042
     Dates: start: 20041203

REACTIONS (4)
  - AGEUSIA [None]
  - EOSINOPHILIA [None]
  - LUNG DISORDER [None]
  - PURPURA [None]
